FAERS Safety Report 10020795 (Version 1)
Quarter: 2013Q4

REPORT INFORMATION
  Report Type: Spontaneous
  Country: US (occurrence: None)
  Receive Date: 20131203
  Receipt Date: 20131203
  Transmission Date: 20140711
  Serious: Yes (Other)
  Sender: FDA-Public Use
  Company Number: AUR-APL-2013-09976

PATIENT
  Age: 52 Year
  Sex: Male
  Weight: 90.7 kg

DRUGS (2)
  1. MELOXICAM (MELOXICAM) [Suspect]
     Indication: NEUROPATHY PERIPHERAL
     Dosage: 1 D
  2. LYRICA (PREGABALIN) [Suspect]
     Indication: NEUROPATHY PERIPHERAL
     Dosage: AS REQUIRED
     Route: 048

REACTIONS (1)
  - Diabetes mellitus [None]
